FAERS Safety Report 12576784 (Version 2)
Quarter: 2016Q4

REPORT INFORMATION
  Report Type: Report from Study
  Country: US (occurrence: US)
  Receive Date: 20160720
  Receipt Date: 20161205
  Transmission Date: 20170207
  Serious: Yes (Other)
  Sender: FDA-Public Use
  Company Number: US-GILEAD-2016-0224448

PATIENT
  Age: 86 Year
  Sex: Female

DRUGS (1)
  1. AMBRISENTAN [Suspect]
     Active Substance: AMBRISENTAN
     Indication: PRODUCT USED FOR UNKNOWN INDICATION
     Dosage: 5 MG, QD
     Route: 065
     Dates: start: 20160125

REACTIONS (8)
  - Hypotension [Unknown]
  - Disability [Unknown]
  - Pulmonary thrombosis [Unknown]
  - Deafness [Unknown]
  - Paralysis [Unknown]
  - Aortic valve disease [Unknown]
  - Weight decreased [Unknown]
  - Anaemia [Unknown]
